FAERS Safety Report 16601776 (Version 2)
Quarter: 2019Q3

REPORT INFORMATION
  Report Type: Spontaneous
  Country: TR (occurrence: TR)
  Receive Date: 20190719
  Receipt Date: 20190724
  Transmission Date: 20191004
  Serious: Yes (Hospitalization)
  Sender: FDA-Public Use
  Company Number: TR-PFIZER INC-K201001551

PATIENT
  Age: 5 Year
  Sex: Female

DRUGS (1)
  1. PROCAINE PENICILLIN [BENZYLPENICILLIN SODIUM;PROCAINE BENZYLPENICILLIN [Suspect]
     Active Substance: PENICILLIN G PROCAINE\PENICILLIN G SODIUM
     Indication: LOWER RESPIRATORY TRACT INFECTION
     Dosage: UNK, SINGLE
     Route: 030

REACTIONS (6)
  - Embolia cutis medicamentosa [Recovered/Resolved]
  - Injection site oedema [Recovered/Resolved]
  - Injection site erythema [Recovered/Resolved]
  - Skin plaque [Recovered/Resolved]
  - Injection site necrosis [Recovered/Resolved]
  - Blood creatine phosphokinase increased [Unknown]
